FAERS Safety Report 15732312 (Version 1)
Quarter: 2018Q4

REPORT INFORMATION
  Report Type: Spontaneous
  Country: GB (occurrence: GB)
  Receive Date: 20181217
  Receipt Date: 20181217
  Transmission Date: 20190205
  Serious: Yes (Other)
  Sender: FDA-Public Use
  Company Number: GB-MYLANLABS-2018M1093118

PATIENT
  Age: 38 Year
  Sex: Male
  Weight: 70 kg

DRUGS (10)
  1. RIZATRIPTAN. [Concomitant]
     Active Substance: RIZATRIPTAN
     Indication: MIGRAINE
     Dosage: TAKE WHEN HAVING MIGRAINE, MAXIMUM 2 PER 24 HOURS.
     Dates: start: 20171019, end: 20180430
  2. CARBAMAZEPINE. [Suspect]
     Active Substance: CARBAMAZEPINE
     Indication: PRODUCT USED FOR UNKNOWN INDICATION
     Dosage: UNK
     Dates: start: 20180608
  3. FULTIUM D3 [Concomitant]
     Active Substance: CHOLECALCIFEROL
     Indication: PRODUCT USED FOR UNKNOWN INDICATION
     Dosage: 1 DOSAGE FORM, QD
     Dates: start: 20170531, end: 20180430
  4. PARACETAMOL [Concomitant]
     Active Substance: ACETAMINOPHEN
     Indication: PRODUCT USED FOR UNKNOWN INDICATION
     Dosage: EVERY 4-6 HOURS UP TO FOUR TIME...
     Dates: start: 20160902
  5. FROVATRIPTAN. [Concomitant]
     Active Substance: FROVATRIPTAN
     Indication: PRODUCT USED FOR UNKNOWN INDICATION
     Dosage: USE AS DIRECTED.
     Dates: start: 20180430
  6. TOPIRAMATE. [Concomitant]
     Active Substance: TOPIRAMATE
     Indication: PRODUCT USED FOR UNKNOWN INDICATION
     Dosage: AT NIGHT.
     Dates: start: 20160902
  7. OXYCODONE HYDROCHLORIDE. [Concomitant]
     Active Substance: OXYCODONE HYDROCHLORIDE
     Indication: PRODUCT USED FOR UNKNOWN INDICATION
     Dosage: 5ML UP TO MAXIMUM 4 HOURLY MAXIMUM.
     Dates: start: 20160902
  8. KETAMINE [Concomitant]
     Active Substance: KETAMINE
     Indication: PRODUCT USED FOR UNKNOWN INDICATION
     Dosage: UNK
     Dates: start: 20180313
  9. LONGTEC [Concomitant]
     Active Substance: OXYCODONE HYDROCHLORIDE
     Indication: PRODUCT USED FOR UNKNOWN INDICATION
     Dosage: 1 DOSAGE FORM, BID
     Dates: start: 20171020
  10. HYDROXOCOBALAMIN [Concomitant]
     Active Substance: HYDROXOCOBALAMIN
     Indication: PRODUCT USED FOR UNKNOWN INDICATION
     Dosage: AS DIRECTED.
     Route: 030
     Dates: start: 20160902

REACTIONS (2)
  - Peripheral swelling [Unknown]
  - Joint swelling [Recovered/Resolved]

NARRATIVE: CASE EVENT DATE: 20180608
